FAERS Safety Report 7688305-2 (Version None)
Quarter: 2011Q3

REPORT INFORMATION
  Report Type: 
  Country: None (occurrence: None)
  Receive Date: 20110817
  Receipt Date: 20101123
  Transmission Date: 20111222
  Serious: No
  Sender: FDA-Public Use
  Company Number: US-KINGPHARMUSA00001-K201001434

PATIENT
  Age: 48 Year
  Sex: Female
  Weight: 70.295 kg

DRUGS (4)
  1. LEVOXYL [Suspect]
     Indication: HYPOTHYROIDISM
     Dosage: 75 MCG, QD
     Dates: start: 19800101, end: 20100929
  2. LEVOXYL [Suspect]
     Dosage: 100 TO 125 MCG, QD
     Route: 048
     Dates: start: 20100930, end: 20101120
  3. LEVOXYL [Suspect]
     Dosage: 137 MCG, QD
     Route: 048
     Dates: start: 20101123
  4. CYTOMEL [Suspect]
     Indication: HYPOTHYROIDISM
     Dosage: 25 MCG, QD
     Route: 048
     Dates: start: 20100601, end: 20100901

REACTIONS (14)
  - LETHARGY [None]
  - CHEST PAIN [None]
  - BLOOD THYROID STIMULATING HORMONE ABNORMAL [None]
  - WEIGHT FLUCTUATION [None]
  - HYPERTHYROIDISM [None]
  - BLOOD GLUCOSE INCREASED [None]
  - PALPITATIONS [None]
  - DIARRHOEA [None]
  - BLOOD THYROID STIMULATING HORMONE INCREASED [None]
  - FATIGUE [None]
  - DEHYDRATION [None]
  - POLLAKIURIA [None]
  - SWELLING FACE [None]
  - DRUG INEFFECTIVE [None]
